FAERS Safety Report 4273956-8 (Version None)
Quarter: 2004Q1

REPORT INFORMATION
  Report Type: 
  Country: None (occurrence: None)
  Receive Date: 20040109
  Receipt Date: 20040109
  Transmission Date: 20041129
  Serious: No
  Sender: FDA-Public Use
  Company Number: None

PATIENT
  Sex: Female

DRUGS (4)
  1. AVELOX [Suspect]
     Indication: FATIGUE
     Dosage: 400 MG QD
     Dates: start: 20030912, end: 20030916
  2. AVELOX [Suspect]
     Indication: MYALGIA
     Dosage: 400 MG QD
     Dates: start: 20030912, end: 20030916
  3. AVELOX [Suspect]
     Indication: FATIGUE
     Dosage: 400 MG QD
     Dates: start: 20031008, end: 20031014
  4. AVELOX [Suspect]
     Indication: MYALGIA
     Dosage: 400 MG QD
     Dates: start: 20031008, end: 20031014

REACTIONS (2)
  - FATIGUE [None]
  - MYALGIA [None]
